FAERS Safety Report 6078756-4 (Version None)
Quarter: 2009Q1

REPORT INFORMATION
  Report Type: 
  Country: None (occurrence: None)
  Receive Date: 20090216
  Receipt Date: 20090210
  Transmission Date: 20090719
  Serious: Yes (Other)
  Sender: FDA-Public Use
  Company Number: BR-ASTRAZENECA-2009UW04091

PATIENT
  Age: 60 Year
  Sex: Female

DRUGS (2)
  1. SEROQUEL [Suspect]
     Indication: PSYCHOTIC DISORDER
     Route: 048
  2. SEROQUEL [Suspect]
     Route: 048

REACTIONS (2)
  - ATRIOVENTRICULAR BLOCK [None]
  - SYNCOPE [None]
